FAERS Safety Report 7417946-2 (Version None)
Quarter: 2011Q2

REPORT INFORMATION
  Report Type: 
  Country: None (occurrence: None)
  Receive Date: 20110415
  Receipt Date: 20110408
  Transmission Date: 20111010
  Serious: Yes (Hospitalization)
  Sender: FDA-Public Use
  Company Number: JP-ROCHE-610288

PATIENT
  Sex: Female
  Weight: 42.2 kg

DRUGS (43)
  1. TOCILIZUMAB [Suspect]
     Route: 041
     Dates: start: 20090121, end: 20090121
  2. TOCILIZUMAB [Suspect]
     Route: 041
     Dates: start: 20091228, end: 20091228
  3. TOCILIZUMAB [Suspect]
     Route: 041
     Dates: start: 20100428, end: 20100428
  4. MEDROL [Suspect]
     Route: 048
     Dates: start: 20081030, end: 20081127
  5. MEDROL [Suspect]
     Route: 048
     Dates: start: 20081128
  6. RHEUMATREX [Concomitant]
     Route: 048
     Dates: end: 20080423
  7. METALCAPTASE [Concomitant]
     Route: 048
     Dates: start: 20080720
  8. VOLTAREN [Concomitant]
     Dosage: FORM: SUSTAINED RELEASE CAPSULE.
     Route: 048
  9. TOCILIZUMAB [Suspect]
     Route: 041
     Dates: start: 20080725, end: 20080725
  10. TOCILIZUMAB [Suspect]
     Route: 041
     Dates: start: 20090219, end: 20090219
  11. TOCILIZUMAB [Suspect]
     Route: 041
     Dates: start: 20100602
  12. MEDROL [Suspect]
     Route: 048
     Dates: start: 20080523, end: 20080525
  13. MEDROL [Suspect]
     Route: 048
     Dates: start: 20080526, end: 20080713
  14. METALCAPTASE [Concomitant]
     Dosage: DRUG REPORTED: METALCAPTASE (D-PENICILLAMINE).
     Route: 048
     Dates: start: 20080409, end: 20080522
  15. TOCILIZUMAB [Suspect]
     Route: 041
     Dates: start: 20080917, end: 20080917
  16. TOCILIZUMAB [Suspect]
     Route: 041
     Dates: start: 20090513, end: 20090513
  17. TASUOMIN [Concomitant]
     Dosage: DRUG REPORTED: TASUOMIN (TAMOXIFEN CITRATE)
     Route: 048
  18. PARIET [Concomitant]
     Dosage: DRUG REPORTED: PARIET (SODIUM RABEPRAZOLE)
     Route: 048
  19. ALENDRONATE SODIUM [Concomitant]
     Dosage: DRUG REPORTED: FOSAMAC 5 MG(ALENDRONATE SODIUM HYDRATE)
     Route: 048
  20. STARSIS [Concomitant]
     Route: 048
  21. TOCILIZUMAB [Suspect]
     Route: 041
     Dates: start: 20081127, end: 20081127
  22. TOCILIZUMAB [Suspect]
     Route: 041
     Dates: start: 20081225, end: 20081225
  23. TOCILIZUMAB [Suspect]
     Route: 041
     Dates: start: 20091130, end: 20091130
  24. TOCILIZUMAB [Suspect]
     Route: 041
     Dates: start: 20100224, end: 20100224
  25. TOCILIZUMAB [Suspect]
     Route: 041
     Dates: start: 20100324, end: 20100324
  26. METALCAPTASE [Concomitant]
     Route: 048
     Dates: start: 20080523, end: 20080719
  27. LOXONIN [Concomitant]
     Dosage: FORM: PERORAL AGENT.
     Route: 048
     Dates: end: 20080120
  28. TOCILIZUMAB [Suspect]
     Route: 041
     Dates: start: 20090610, end: 20090610
  29. TOCILIZUMAB [Suspect]
     Route: 041
     Dates: start: 20091007, end: 20091007
  30. MEDROL [Suspect]
     Indication: RHEUMATOID ARTHRITIS
     Route: 048
     Dates: end: 20080522
  31. RIMATIL [Concomitant]
     Route: 048
     Dates: start: 20090121, end: 20090203
  32. TOCILIZUMAB [Suspect]
     Indication: RHEUMATOID ARTHRITIS
     Route: 041
     Dates: start: 20080627, end: 20080627
  33. TOCILIZUMAB [Suspect]
     Dosage: DRUG DISCONTINUED.
     Route: 041
     Dates: start: 20090319, end: 20090319
  34. TOCILIZUMAB [Suspect]
     Route: 041
     Dates: start: 20090708, end: 20090708
  35. TOCILIZUMAB [Suspect]
     Route: 041
     Dates: start: 20090909, end: 20090909
  36. MEDROL [Suspect]
     Route: 048
     Dates: start: 20080802, end: 20081029
  37. BEZAFIBRATE [Concomitant]
     Dosage: DRUG REPORTED: BEZATATE (BEZAFIBRATE)
     Route: 048
  38. TOCILIZUMAB [Suspect]
     Route: 041
     Dates: start: 20080822, end: 20080822
  39. TOCILIZUMAB [Suspect]
     Route: 041
     Dates: start: 20081030, end: 20081030
  40. TOCILIZUMAB [Suspect]
     Route: 041
     Dates: start: 20090805, end: 20090805
  41. MEDROL [Suspect]
     Route: 048
     Dates: start: 20080714, end: 20080801
  42. PYDOXAL [Concomitant]
     Route: 048
  43. SELBEX [Concomitant]
     Dosage: FORM: PERORAL AGENT.
     Route: 048

REACTIONS (8)
  - HYPOAESTHESIA [None]
  - DIZZINESS [None]
  - LOCALISED INFECTION [None]
  - JOINT DESTRUCTION [None]
  - BRONCHITIS [None]
  - SUBDURAL HAEMATOMA [None]
  - HYPERTENSION [None]
  - HYPERTRIGLYCERIDAEMIA [None]
